FAERS Safety Report 7506522-9 (Version None)
Quarter: 2011Q2

REPORT INFORMATION
  Report Type: 
  Country: None (occurrence: None)
  Receive Date: 20110526
  Receipt Date: 20110520
  Transmission Date: 20111010
  Serious: Yes (Other)
  Sender: FDA-Public Use
  Company Number: US-MERCK-1105USA03195

PATIENT
  Sex: Female

DRUGS (10)
  1. DEXAMETHASONE [Suspect]
     Route: 042
     Dates: start: 20110519
  2. EMEND [Suspect]
     Indication: PROPHYLAXIS OF NAUSEA AND VOMITING
     Route: 048
  3. LOPRESSOR [Concomitant]
     Route: 065
  4. EMEND [Suspect]
     Route: 048
     Dates: start: 20110519, end: 20110519
  5. TAXOTERE [Concomitant]
     Route: 065
  6. LISINOPRIL [Concomitant]
     Route: 065
  7. CRESTOR [Concomitant]
     Route: 065
  8. CYTOXAN [Concomitant]
     Route: 065
  9. EMEND [Suspect]
     Route: 048
     Dates: start: 20110520, end: 20110520
  10. DEXAMETHASONE [Suspect]
     Route: 048

REACTIONS (3)
  - RENAL FAILURE ACUTE [None]
  - RASH [None]
  - CELLULITIS [None]
